FAERS Safety Report 7513016-3 (Version None)
Quarter: 2011Q2

REPORT INFORMATION
  Report Type: 
  Country: None (occurrence: None)
  Receive Date: 20110531
  Receipt Date: 20110524
  Transmission Date: 20111010
  Serious: Yes (Hospitalization)
  Sender: FDA-Public Use
  Company Number: US-SANOFI-AVENTIS-2011SA032606

PATIENT
  Age: 80 Year
  Sex: Female

DRUGS (11)
  1. PROZAC [Concomitant]
  2. COUMADIN [Concomitant]
  3. MULTAQ [Suspect]
     Dosage: 400 MG IN THE MORNING AND 200 MG IN THE EVENING
     Route: 048
     Dates: start: 20110519, end: 20110519
  4. VITAMIN D [Concomitant]
  5. LASIX [Concomitant]
     Dosage: 40 MG DAILY MONDAY THROUGH FRIDAY
     Dates: start: 20110521
  6. MULTAQ [Suspect]
     Route: 048
     Dates: start: 20110520
  7. CARDIZEM [Concomitant]
     Indication: HEART RATE
  8. ZOFRAN [Concomitant]
  9. MULTAQ [Suspect]
     Indication: ATRIAL FIBRILLATION
     Route: 048
     Dates: start: 20110518, end: 20110518
  10. SEROQUEL [Concomitant]
  11. PRILOSEC [Concomitant]

REACTIONS (8)
  - ASPARTATE AMINOTRANSFERASE INCREASED [None]
  - BLOOD BILIRUBIN INCREASED [None]
  - VOMITING [None]
  - CONFUSIONAL STATE [None]
  - ALANINE AMINOTRANSFERASE INCREASED [None]
  - HEPATORENAL FAILURE [None]
  - BLOOD CREATININE INCREASED [None]
  - INTERNATIONAL NORMALISED RATIO INCREASED [None]
